FAERS Safety Report 18840106 (Version 5)
Quarter: 2021Q2

REPORT INFORMATION
  Report Type: Report from Study
  Country: GB (occurrence: GB)
  Receive Date: 20210203
  Receipt Date: 20210522
  Transmission Date: 20210717
  Serious: Yes (Other)
  Sender: FDA-Public Use
  Company Number: GB-ACCORD-216240

PATIENT
  Age: 64 Year
  Sex: Female

DRUGS (7)
  1. ADALIMUMAB [Interacting]
     Active Substance: ADALIMUMAB
     Indication: PRODUCT USED FOR UNKNOWN INDICATION
     Dosage: 40 MILLIGRAM, Q2W
     Route: 058
  2. ADALIMUMAB [Interacting]
     Active Substance: ADALIMUMAB
     Indication: PRODUCT USED FOR UNKNOWN INDICATION
     Dosage: 80 MILLIGRAM WEEK 2
     Route: 058
  3. PARACETAMOL [Interacting]
     Active Substance: ACETAMINOPHEN
     Indication: PRODUCT USED FOR UNKNOWN INDICATION
     Route: 065
  4. FLUOXETINE [Suspect]
     Active Substance: FLUOXETINE HYDROCHLORIDE
     Indication: PRODUCT USED FOR UNKNOWN INDICATION
     Route: 065
  5. ADALIMUMAB [Interacting]
     Active Substance: ADALIMUMAB
     Indication: COLITIS ULCERATIVE
     Dosage: 40 MILLIGRAM WEEK 4
     Route: 058
  6. ADALIMUMAB [Interacting]
     Active Substance: ADALIMUMAB
     Dosage: 160 MILLIGRAM WEEK ZERO
     Route: 058
     Dates: start: 20200709
  7. ADALIMUMAB [Interacting]
     Active Substance: ADALIMUMAB
     Indication: PRODUCT USED FOR UNKNOWN INDICATION
     Dosage: 160 MILLIGRAM WEEK ZERO
     Route: 058
     Dates: start: 20200709

REACTIONS (39)
  - Dyspnoea [Unknown]
  - Panic attack [Unknown]
  - Drug interaction [Unknown]
  - Loss of personal independence in daily activities [Unknown]
  - Feeling hot [Unknown]
  - Hyperhidrosis [Unknown]
  - Poor quality sleep [Unknown]
  - Injection site erythema [Unknown]
  - Spinal pain [Unknown]
  - Seasonal allergy [Unknown]
  - Fibromyalgia [Unknown]
  - Joint stiffness [Unknown]
  - Injection site pruritus [Unknown]
  - Paraesthesia [Unknown]
  - Dysphonia [Unknown]
  - Adverse drug reaction [Unknown]
  - Memory impairment [Unknown]
  - Headache [Unknown]
  - Depressed mood [Unknown]
  - Post viral fatigue syndrome [Unknown]
  - Intervertebral disc degeneration [Unknown]
  - Therapeutic product effect incomplete [Unknown]
  - Arthritis [Unknown]
  - Nausea [Unknown]
  - Dizziness [Unknown]
  - Balance disorder [Unknown]
  - Colitis ulcerative [Unknown]
  - Disorientation [Unknown]
  - Pain [Unknown]
  - Chronic fatigue syndrome [Unknown]
  - Dysstasia [Unknown]
  - Anxiety [Unknown]
  - Malaise [Unknown]
  - Condition aggravated [Unknown]
  - Stress [Unknown]
  - Back disorder [Unknown]
  - Fatigue [Unknown]
  - Feeling abnormal [Unknown]
  - Blood pressure increased [Unknown]

NARRATIVE: CASE EVENT DATE: 20200709
